FAERS Safety Report 5939690-0 (Version None)
Quarter: 2008Q4

REPORT INFORMATION
  Report Type: 
  Country: None (occurrence: None)
  Receive Date: 20081030
  Receipt Date: 20081030
  Transmission Date: 20090506
  Serious: Yes (Other)
  Sender: FDA-Public Use
  Company Number: None

PATIENT
  Sex: Female
  Weight: 70.3075 kg

DRUGS (1)
  1. IBUPROFEN TABLETS [Suspect]
     Indication: TOOTHACHE
     Dosage: 2 PILLS 2X - 4X PO, SEVERAL YEARS
     Route: 048

REACTIONS (3)
  - DIZZINESS [None]
  - PALPITATIONS [None]
  - TOOTHACHE [None]
